FAERS Safety Report 4625464-X (Version None)
Quarter: 2005Q2

REPORT INFORMATION
  Report Type: 
  Country: None (occurrence: None)
  Receive Date: 20050401
  Receipt Date: 20050324
  Transmission Date: 20051028
  Serious: Yes (Other)
  Sender: FDA-Public Use
  Company Number: US-BOEHRINGER INGELHEIM PHARMACEUTICALS, INC.-2005-BP-04864BP

PATIENT
  Age: 57 Year
  Sex: Male

DRUGS (3)
  1. MIRAPEX [Suspect]
     Indication: RESTLESS LEGS SYNDROME
     Route: 048
     Dates: start: 20020101, end: 20050221
  2. VOLTAREN [Concomitant]
  3. ASPIRIN [Concomitant]

REACTIONS (2)
  - PATHOLOGICAL GAMBLING [None]
  - SUICIDAL IDEATION [None]
